FAERS Safety Report 5016893-3 (Version None)
Quarter: 2006Q2

REPORT INFORMATION
  Report Type: 
  Country: None (occurrence: None)
  Receive Date: 20060526
  Receipt Date: 20060515
  Transmission Date: 20061013
  Serious: Yes (Disabling)
  Sender: FDA-Public Use
  Company Number: GB200605003230

PATIENT
  Age: 45 Year
  Sex: Male
  Weight: 110 kg

DRUGS (10)
  1. ZYPREXA [Suspect]
     Indication: PSYCHOTIC DISORDER
     Dosage: 5 MG, ORAL
     Route: 048
     Dates: start: 20030701
  2. CHLORPROMAZINE [Concomitant]
  3. THYROXINE ^APS^ (LEVOTHYROXINE SODIUM) [Concomitant]
  4. DESMOPRESSIN ACETATE [Concomitant]
  5. OMEPRAZOLE [Concomitant]
  6. HYDROCORTISONE [Concomitant]
  7. TOPIRAMATE [Concomitant]
  8. CITALOPRAM HYDROBROMIDE [Concomitant]
  9. CARBAMAZEPINE [Concomitant]
  10. ASPIRIN [Concomitant]

REACTIONS (6)
  - DIFFICULTY IN WALKING [None]
  - LEUKOPENIA [None]
  - NEUTROPENIA [None]
  - OEDEMA PERIPHERAL [None]
  - PAIN [None]
  - WHEELCHAIR USER [None]
